FAERS Safety Report 24298696 (Version 1)
Quarter: 2024Q3

REPORT INFORMATION
  Report Type: Spontaneous
  Country: US (occurrence: None)
  Receive Date: 20240906
  Receipt Date: 20240906
  Transmission Date: 20241016
  Serious: Yes (Death)
  Sender: Public
  Company Number: None

PATIENT
  Age: 79 Year
  Sex: Male
  Weight: 98.1 kg

DRUGS (22)
  1. RASAGILINE MESYLATE [Suspect]
     Active Substance: RASAGILINE MESYLATE
     Indication: Parkinson^s disease
     Dosage: 30 TABLETS .5 PER DAY ORAL
     Route: 048
     Dates: start: 20240809, end: 20240814
  2. DEVICE [Concomitant]
     Active Substance: DEVICE
  3. MOUNJARO [Concomitant]
     Active Substance: TIRZEPATIDE
  4. TRELEGY ELLIPTA [Concomitant]
     Active Substance: FLUTICASONE FUROATE\UMECLIDINIUM BROMIDE\VILANTEROL TRIFENATATE
  5. LOSARTAN [Concomitant]
     Active Substance: LOSARTAN\LOSARTAN POTASSIUM
  6. HYDROCHLOROTHIAZIDE [Concomitant]
     Active Substance: HYDROCHLOROTHIAZIDE
  7. XARELTO [Concomitant]
     Active Substance: RIVAROXABAN
  8. METOPROLOL [Concomitant]
     Active Substance: METOPROLOL
  9. TRESIBA [Concomitant]
     Active Substance: INSULIN DEGLUDEC
  10. SIMVASTATIN [Concomitant]
     Active Substance: SIMVASTATIN
  11. CIALIS [Concomitant]
     Active Substance: TADALAFIL
  12. RYALTRIS [Concomitant]
     Active Substance: MOMETASONE FUROATE MONOHYDRATE\OLOPATADINE HYDROCHLORIDE
  13. DOMPERIDONE [Concomitant]
     Active Substance: DOMPERIDONE
  14. TAMSULOSIN [Concomitant]
     Active Substance: TAMSULOSIN
  15. JARDIANCE [Concomitant]
     Active Substance: EMPAGLIFLOZIN
  16. Methenomine [Concomitant]
  17. HORIZANT [Concomitant]
     Active Substance: GABAPENTIN ENACARBIL
  18. OMEPRAZOLE [Concomitant]
     Active Substance: OMEPRAZOLE
  19. MELATONIN [Concomitant]
     Active Substance: MELATONIN
  20. PROBIOTICS NOS [Concomitant]
     Active Substance: PROBIOTICS NOS
  21. IBUPROFEN [Concomitant]
     Active Substance: IBUPROFEN
  22. TYLENOL [Concomitant]
     Active Substance: ACETAMINOPHEN

REACTIONS (1)
  - Product complaint [None]

NARRATIVE: CASE EVENT DATE: 20240815
